FAERS Safety Report 11620999 (Version 2)
Quarter: 2015Q4

REPORT INFORMATION
  Report Type: Spontaneous
  Country: US (occurrence: US)
  Receive Date: 20151012
  Receipt Date: 20151104
  Transmission Date: 20160304
  Serious: No
  Sender: FDA-Public Use
  Company Number: US-GLAXOSMITHKLINE-US2015137448

PATIENT
  Sex: Female
  Weight: 124.7 kg

DRUGS (1)
  1. TANZEUM [Suspect]
     Active Substance: ALBIGLUTIDE
     Indication: PRODUCT USED FOR UNKNOWN INDICATION
     Dosage: 30 MG, WE
     Route: 042
     Dates: start: 201509

REACTIONS (6)
  - Erythema [Recovered/Resolved]
  - Eye swelling [Recovered/Resolved]
  - Pharyngeal oedema [Recovered/Resolved]
  - Food allergy [Unknown]
  - Swelling face [Recovered/Resolved]
  - Drug ineffective [Unknown]
